FAERS Safety Report 25340157 (Version 1)
Quarter: 2025Q2

REPORT INFORMATION
  Report Type: Spontaneous
  Country: PL (occurrence: PL)
  Receive Date: 20250521
  Receipt Date: 20250521
  Transmission Date: 20250717
  Serious: Yes (Other)
  Sender: ROCHE
  Company Number: PL-ROCHE-10000288295

PATIENT
  Age: 57 Year
  Sex: Male

DRUGS (11)
  1. LUNSUMIO [Suspect]
     Active Substance: MOSUNETUZUMAB-AXGB
     Indication: Follicular lymphoma
     Route: 042
     Dates: start: 20240716
  2. LUNSUMIO [Suspect]
     Active Substance: MOSUNETUZUMAB-AXGB
     Route: 042
     Dates: start: 20240723
  3. LUNSUMIO [Suspect]
     Active Substance: MOSUNETUZUMAB-AXGB
     Route: 042
     Dates: start: 20240730
  4. LUNSUMIO [Suspect]
     Active Substance: MOSUNETUZUMAB-AXGB
     Route: 042
     Dates: start: 20240820
  5. LUNSUMIO [Suspect]
     Active Substance: MOSUNETUZUMAB-AXGB
     Route: 042
     Dates: start: 20240709
  6. LUNSUMIO [Suspect]
     Active Substance: MOSUNETUZUMAB-AXGB
     Route: 042
     Dates: start: 20240910
  7. LUNSUMIO [Suspect]
     Active Substance: MOSUNETUZUMAB-AXGB
     Route: 042
     Dates: start: 20241001
  8. LUNSUMIO [Suspect]
     Active Substance: MOSUNETUZUMAB-AXGB
     Dosage: LAST ADMINISTRATION OF LUNSUMIO 30 MG IV TOOK PLACE ON 30/APR/2025 (CYCLE 15)
     Route: 042
     Dates: start: 20241022
  9. GRANULOCYTE COLONY-STIMULATING FACTOR NOS [Concomitant]
     Active Substance: GRANULOCYTE COLONY-STIMULATING FACTOR NOS
     Route: 058
     Dates: start: 20240711, end: 20240729
  10. LIPEGFILGRASTIM [Concomitant]
     Active Substance: LIPEGFILGRASTIM
     Route: 058
     Dates: start: 20241001
  11. LIPEGFILGRASTIM [Concomitant]
     Active Substance: LIPEGFILGRASTIM
     Route: 058
     Dates: start: 20240911

REACTIONS (2)
  - Hypogammaglobulinaemia [Unknown]
  - Bacterial infection [Unknown]
